FAERS Safety Report 16032275 (Version 3)
Quarter: 2019Q2

REPORT INFORMATION
  Report Type: Spontaneous
  Country: US (occurrence: US)
  Receive Date: 20190304
  Receipt Date: 20190418
  Transmission Date: 20190711
  Serious: No
  Sender: FDA-Public Use
  Company Number: US-LEXICON PHARMACEUTICALS, INC-19-1606-00191

PATIENT
  Age: 72 Year
  Sex: Male

DRUGS (1)
  1. TELOTRISTAT ETHYL [Suspect]
     Active Substance: TELOTRISTAT ETHYL
     Indication: CARCINOID SYNDROME
     Route: 048
     Dates: start: 20181127

REACTIONS (4)
  - Blood glucose decreased [Unknown]
  - Drug ineffective [Unknown]
  - Anxiety [Unknown]
  - Abdominal pain [Unknown]

NARRATIVE: CASE EVENT DATE: 20181127
